FAERS Safety Report 8062487-5 (Version None)
Quarter: 2011Q4

REPORT INFORMATION
  Report Type: 
  Country: None (occurrence: None)
  Receive Date: 20111220
  Receipt Date: 20110915
  Transmission Date: 20120403
  Serious: Yes (Other)
  Sender: FDA-Public Use
  Company Number: PHEH2011US04889

PATIENT
  Age: 40 Year
  Sex: Female
  Weight: 111 kg

DRUGS (4)
  1. MYFORTIC [Suspect]
     Indication: PROPHYLAXIS AGAINST TRANSPLANT REJECTION
     Dosage: 1440MG,  DAILY, ORAL
     Route: 048
     Dates: start: 20100808
  2. PREDNISONE TAB [Concomitant]
  3. LEXAPRO [Concomitant]
  4. ESTRACE [Concomitant]

REACTIONS (2)
  - BACTERIAL INFECTION [None]
  - CALCIUM DEFICIENCY [None]
